FAERS Safety Report 6273947-1 (Version None)
Quarter: 2009Q3

REPORT INFORMATION
  Report Type: 
  Country: None (occurrence: None)
  Receive Date: 20090720
  Receipt Date: 20090710
  Transmission Date: 20100115
  Serious: Yes (Other)
  Sender: FDA-Public Use
  Company Number: JP-MERCK-0907USA02227

PATIENT
  Age: 55 Year
  Sex: Male

DRUGS (3)
  1. PEPCID [Suspect]
     Route: 048
  2. MYSLEE [Suspect]
     Route: 048
  3. BASEN [Concomitant]
     Route: 048

REACTIONS (2)
  - HYPOGLYCAEMIA [None]
  - PSYCHIATRIC SYMPTOM [None]
